FAERS Safety Report 9229882 (Version 1)
Quarter: 2013Q2

REPORT INFORMATION
  Report Type: Spontaneous
  Country: US (occurrence: None)
  Receive Date: 20130412
  Receipt Date: 20130412
  Transmission Date: 20140414
  Serious: Yes (Other)
  Sender: FDA-Public Use
  Company Number: None

PATIENT
  Age: 31 Year
  Sex: Female
  Weight: 49.9 kg

DRUGS (2)
  1. LIOTHYRONINE SODIUM [Suspect]
  2. LIOTHRONINE SOD. [Concomitant]

REACTIONS (3)
  - Fatigue [None]
  - Depression [None]
  - Product substitution issue [None]
